FAERS Safety Report 17097435 (Version 1)
Quarter: 2019Q4

REPORT INFORMATION
  Report Type: Spontaneous
  Country: US (occurrence: US)
  Receive Date: 20191202
  Receipt Date: 20191202
  Transmission Date: 20200122
  Serious: Yes (Other)
  Sender: FDA-Public Use
  Company Number: US-SA-2019SA333343

PATIENT
  Age: 33 Year
  Sex: Female
  Weight: 71.65 kg

DRUGS (12)
  1. STERILE WATER [Concomitant]
     Active Substance: WATER
     Dosage: 15 ML, PRN
     Route: 042
     Dates: start: 20191003
  2. DIPHENHYDRAMINE. [Concomitant]
     Active Substance: DIPHENHYDRAMINE
     Dosage: 12.5 MG, PRN
     Route: 048
     Dates: start: 20191003
  3. NORMAL SALINE [Concomitant]
     Active Substance: SODIUM CHLORIDE
     Dosage: 0.9 %, PRN
     Route: 065
     Dates: start: 20191003
  4. EPINEPHRINE. [Concomitant]
     Active Substance: EPINEPHRINE
     Indication: ANAPHYLACTIC REACTION
     Dosage: 0.3 MG, PRN
     Route: 030
     Dates: start: 20191003
  5. VENLAFAXINE HCL [Concomitant]
     Active Substance: VENLAFAXINE HYDROCHLORIDE
     Dosage: 1 DF, QD
     Route: 048
     Dates: start: 20190926
  6. MAGNESIUM [Concomitant]
     Active Substance: MAGNESIUM
     Dosage: 250 MG, PRN
     Route: 048
     Dates: start: 20190226
  7. ACETAMINOPHEN. [Concomitant]
     Active Substance: ACETAMINOPHEN
     Dosage: 650 MG, PRN
     Route: 048
     Dates: start: 20191003
  8. SODIUM CHLORIDE 0.9% [Concomitant]
     Active Substance: SODIUM CHLORIDE
     Dosage: 0.9 %, PRN
     Route: 042
     Dates: start: 20191003
  9. FABRAZYME [Suspect]
     Active Substance: AGALSIDASE BETA
     Indication: FABRY^S DISEASE
     Dosage: 75 MG, QOW
     Route: 041
     Dates: start: 20190507
  10. HEPARIN [Concomitant]
     Active Substance: HEPARIN SODIUM
     Dosage: 100 UNITS/ML, PRN
     Route: 042
     Dates: start: 20191003
  11. PRENATAL VITAMINS [MINERALS NOS;VITAMINS NOS] [Concomitant]
     Active Substance: MINERALS\VITAMINS
     Dosage: UNK UNK, PRN
     Route: 065
     Dates: start: 20190226
  12. ASPIRIN EC [Concomitant]
     Active Substance: ASPIRIN
     Dosage: 1 DF, QD
     Route: 048
     Dates: start: 19910126

REACTIONS (1)
  - Ovarian cyst ruptured [Unknown]
